FAERS Safety Report 7595042-1 (Version None)
Quarter: 2011Q2

REPORT INFORMATION
  Report Type: 
  Country: None (occurrence: None)
  Receive Date: 20110628
  Receipt Date: 20110620
  Transmission Date: 20111010
  Serious: Yes (Other)
  Sender: FDA-Public Use
  Company Number: TPA2011A03284

PATIENT
  Age: 78 Year
  Sex: Female
  Weight: 45.3597 kg

DRUGS (2)
  1. DEXILANT [Suspect]
     Indication: GASTROOESOPHAGEAL REFLUX DISEASE
     Dosage: 60 MG, 1 IN 1 D, PER ORAL
     Route: 048
     Dates: start: 20110428
  2. PRADAXA [Concomitant]

REACTIONS (2)
  - ATRIAL FIBRILLATION [None]
  - MUSCLE SPASMS [None]
